FAERS Safety Report 15213423 (Version 2)
Quarter: 2018Q3

REPORT INFORMATION
  Report Type: Report from Study
  Country: None (occurrence: US)
  Receive Date: 20180730
  Receipt Date: 20180801
  Transmission Date: 20181010
  Serious: Yes (Hospitalization)
  Sender: FDA-Public Use
  Company Number: US-BAUSCH-BL-2018-020445

PATIENT
  Age: 50 Year
  Sex: Male
  Weight: 69.46 kg

DRUGS (2)
  1. XIFAXAN [Suspect]
     Active Substance: RIFAXIMIN
     Indication: HEPATIC CIRRHOSIS
     Dosage: THROUGH FEEDING TUBE
     Route: 050
  2. PROPRANOLOL [Concomitant]
     Active Substance: PROPRANOLOL HYDROCHLORIDE
     Indication: HYPERTENSION
     Dosage: THROUGH FEEDING TUBE

REACTIONS (1)
  - Throat cancer [Recovering/Resolving]

NARRATIVE: CASE EVENT DATE: 201709
